FAERS Safety Report 22815190 (Version 7)
Quarter: 2023Q4

REPORT INFORMATION
  Report Type: Spontaneous
  Country: US (occurrence: US)
  Receive Date: 20230811
  Receipt Date: 20231219
  Transmission Date: 20240109
  Serious: Yes (Hospitalization)
  Sender: FDA-Public Use
  Company Number: US-PFIZER INC-PV202300137297

PATIENT
  Age: 75 Year
  Sex: Female
  Weight: 111.11 kg

DRUGS (5)
  1. IBRANCE [Suspect]
     Active Substance: PALBOCICLIB
     Indication: Breast cancer metastatic
     Dosage: DAILY FOR 21 DAYS, THEN OFF 7 DAYS EVERY 28 DAYS
     Route: 048
     Dates: start: 202111, end: 2022
  2. IBRANCE [Suspect]
     Active Substance: PALBOCICLIB
     Dosage: UNK
     Dates: start: 2022, end: 2022
  3. IBRANCE [Suspect]
     Active Substance: PALBOCICLIB
     Dosage: UNK
     Dates: start: 2022, end: 2023
  4. ANASTROZOLE [Concomitant]
     Active Substance: ANASTROZOLE
     Indication: Hot flush
     Dosage: UNK
     Dates: start: 202111, end: 202309
  5. ANASTROZOLE [Concomitant]
     Active Substance: ANASTROZOLE
     Indication: Night sweats

REACTIONS (5)
  - Malaise [Unknown]
  - Neoplasm progression [Unknown]
  - Brain fog [Not Recovered/Not Resolved]
  - Balance disorder [Not Recovered/Not Resolved]
  - Illness [Unknown]

NARRATIVE: CASE EVENT DATE: 20210101
